FAERS Safety Report 5406547-3 (Version None)
Quarter: 2007Q3

REPORT INFORMATION
  Report Type: 
  Country: None (occurrence: None)
  Receive Date: 20070806
  Receipt Date: 20070727
  Transmission Date: 20080115
  Serious: Yes (Other)
  Sender: FDA-Public Use
  Company Number: US-PFIZER INC-2006122822

PATIENT
  Sex: Male

DRUGS (30)
  1. LIPITOR [Suspect]
     Dates: start: 20040920, end: 20060701
  2. ARAVA [Concomitant]
  3. FUROSEMIDE [Concomitant]
     Dates: end: 20050714
  4. MOBIC [Concomitant]
  5. GABAPENTIN [Concomitant]
     Dates: end: 20060101
  6. ZYRTEC [Concomitant]
     Dates: start: 20050919
  7. NASONEX [Concomitant]
     Route: 045
  8. PREDNISONE TAB [Concomitant]
  9. CLARITIN [Concomitant]
     Dates: end: 20050919
  10. FISH OIL [Concomitant]
  11. VITAMIN E [Concomitant]
  12. ASPIRIN [Concomitant]
  13. ELAVIL [Concomitant]
     Dates: start: 20061114
  14. TAMSULOSIN HCL [Concomitant]
  15. CLONIDINE [Concomitant]
     Dates: start: 20070307, end: 20070329
  16. NIASPAN [Concomitant]
     Dates: start: 20060701
  17. MICARDIS [Concomitant]
     Dates: start: 20050714, end: 20070329
  18. DILTIAZEM [Concomitant]
     Dates: start: 20061229, end: 20070329
  19. OMACOR [Concomitant]
     Dates: start: 20060503
  20. DIOVAN HCT [Concomitant]
  21. CYMBALTA [Concomitant]
  22. TRICOR [Concomitant]
     Dates: start: 20060101, end: 20060503
  23. TESTOSTERONE [Concomitant]
  24. REQUIP [Concomitant]
  25. PROTONIX [Concomitant]
  26. PRILOSEC [Concomitant]
  27. CIALIS [Concomitant]
  28. LYRICA [Concomitant]
     Dates: start: 20060101, end: 20061114
  29. NORVASC [Concomitant]
     Dates: start: 20061218, end: 20061229
  30. LOTREL [Concomitant]

REACTIONS (8)
  - AMNESIA [None]
  - ASTHENIA [None]
  - COGNITIVE DISORDER [None]
  - DEPRESSION [None]
  - DISORIENTATION [None]
  - FATIGUE [None]
  - MYOPATHY [None]
  - NEUROPATHY PERIPHERAL [None]
